FAERS Safety Report 13287753 (Version 1)
Quarter: 2017Q1

REPORT INFORMATION
  Report Type: Spontaneous
  Country: US (occurrence: US)
  Receive Date: 20170302
  Receipt Date: 20170302
  Transmission Date: 20170428
  Serious: No
  Sender: FDA-Public Use
  Company Number: US-ASTRAZENECA-2017SE19916

PATIENT
  Age: 15663 Day
  Sex: Female

DRUGS (2)
  1. SEROQUEL [Suspect]
     Active Substance: QUETIAPINE FUMARATE
     Indication: FEELING ABNORMAL
     Dosage: AT NIGHT
     Route: 048
  2. PAXIL [Concomitant]
     Active Substance: PAROXETINE HYDROCHLORIDE
     Indication: DEPRESSION
     Route: 048

REACTIONS (4)
  - Intentional product misuse [Unknown]
  - Tremor [Unknown]
  - Tongue blistering [Unknown]
  - Nervousness [Unknown]

NARRATIVE: CASE EVENT DATE: 20170220
